FAERS Safety Report 6382146-4 (Version None)
Quarter: 2009Q3

REPORT INFORMATION
  Report Type: 
  Country: None (occurrence: None)
  Receive Date: 20090930
  Receipt Date: 20090925
  Transmission Date: 20100115
  Serious: Yes (Other)
  Sender: FDA-Public Use
  Company Number: PHEH2009US02552

PATIENT
  Sex: Female
  Weight: 93.878 kg

DRUGS (2)
  1. ZOMETA [Suspect]
     Indication: METASTASES TO BONE
     Dosage: 4 MG, QMO
     Route: 042
     Dates: start: 20050201, end: 20090311
  2. ANTINEOPLASTIC AGENTS [Concomitant]

REACTIONS (4)
  - DISABILITY [None]
  - OSTEONECROSIS [None]
  - SINUSITIS [None]
  - SPEECH DISORDER [None]
